FAERS Safety Report 10273149 (Version 3)
Quarter: 2014Q3

REPORT INFORMATION
  Report Type: Report from Study
  Country: BE (occurrence: BE)
  Receive Date: 20140702
  Receipt Date: 20140820
  Transmission Date: 20150326
  Serious: Yes (Hospitalization, Other)
  Sender: FDA-Public Use
  Company Number: BE-BAYER-2014-082265

PATIENT
  Age: 82 Year
  Sex: Male

DRUGS (12)
  1. XARELTO [Concomitant]
     Active Substance: RIVAROXABAN
     Dosage: 15 MG, UNK
  2. BISOPROLOL [BISOPROLOL FUMARATE] [Concomitant]
  3. NEXAVAR [Suspect]
     Active Substance: SORAFENIB
     Indication: HEPATOCELLULAR CARCINOMA
     Dosage: 600 MG DAILY DOSE
     Route: 048
  4. LASIX [Concomitant]
     Active Substance: FUROSEMIDE
     Dosage: HALF LASIX, 40 MG
  5. CREON [AMYLASE,LIPASE,PROTEASE] [Concomitant]
  6. NEXAVAR [Suspect]
     Active Substance: SORAFENIB
     Indication: HEPATOCELLULAR CARCINOMA
     Dosage: DAILY DOSE 400 MG
     Dates: start: 20140526
  7. URSOFALK [Concomitant]
     Active Substance: URSODIOL
     Dosage: UNK
  8. SULFASALAZINE. [Concomitant]
     Active Substance: SULFASALAZINE
     Dosage: UNK
  9. D-VITAL CALCIUM [Concomitant]
  10. ZOCOR [Concomitant]
     Active Substance: SIMVASTATIN
  11. LISINOPRIL. [Concomitant]
     Active Substance: LISINOPRIL
     Dosage: 50 MG, UNK
  12. INSULIN [Concomitant]
     Active Substance: INSULIN NOS

REACTIONS (10)
  - General physical health deterioration [None]
  - Weight decreased [None]
  - Confusional state [None]
  - Fatigue [None]
  - Ascites [None]
  - Faeces pale [None]
  - Weight decreased [None]
  - Chest pain [None]
  - Weight decreased [None]
  - Vomiting [None]

NARRATIVE: CASE EVENT DATE: 20140601
